FAERS Safety Report 7939293-2 (Version None)
Quarter: 2011Q4

REPORT INFORMATION
  Report Type: 
  Country: None (occurrence: None)
  Receive Date: 20111125
  Receipt Date: 20111122
  Transmission Date: 20120403
  Serious: Yes (Other)
  Sender: FDA-Public Use
  Company Number: HK-SP-2011-03756

PATIENT
  Age: 61 Year
  Sex: Male

DRUGS (1)
  1. IMMUCYST [Suspect]
     Indication: BLADDER CANCER STAGE 0, WITH CANCER IN SITU
     Dosage: NOT REPORTED
     Route: 043
     Dates: start: 19990123, end: 20090227

REACTIONS (4)
  - METAPLASIA [None]
  - OFF LABEL USE [None]
  - CYSTITIS [None]
  - NEOPLASM RECURRENCE [None]
